FAERS Safety Report 8619535 (Version 3)
Quarter: 2014Q2

REPORT INFORMATION
  Report Type: Spontaneous
  Country: JP (occurrence: JP)
  Receive Date: 20120618
  Receipt Date: 20140523
  Transmission Date: 20141212
  Serious: Yes (Hospitalization)
  Sender: FDA-Public Use
  Company Number: JP-AMGEN-JPNSP2012037206

PATIENT
  Age: 80 Year
  Sex: Male
  Weight: 65 kg

DRUGS (10)
  1. RANMARK [Suspect]
     Indication: METASTASES TO BONE
     Dosage: 120 MG, Q4WK
     Route: 058
     Dates: start: 20120509, end: 20120606
  2. LOXOPROFEN [Concomitant]
     Dosage: UNKNOWN
     Route: 065
  3. METHYCOBAL [Concomitant]
     Dosage: UNKNOWN
     Route: 048
  4. FERROMIA [Concomitant]
     Dosage: UNKNOWN
     Route: 048
  5. LYRICA [Concomitant]
     Dosage: 1 DF, BID
     Route: 048
     Dates: start: 20120509
  6. TAKEPRON [Concomitant]
     Dosage: 1 DF, QD
     Route: 048
     Dates: start: 20120414
  7. CALONAL [Concomitant]
     Dosage: 2 DF, TID
     Route: 048
     Dates: start: 20120414
  8. CASODEX [Concomitant]
     Dosage: 1 DF, QD
     Route: 048
     Dates: start: 20120414
  9. LEUPLIN [Concomitant]
     Indication: PROSTATE CANCER
     Dosage: UNKNOWN
     Route: 058
     Dates: start: 20120414
  10. CYANOCOBALAMIN [Concomitant]
     Dosage: UNKNOWN
     Route: 048

REACTIONS (3)
  - Hyperkalaemia [Recovering/Resolving]
  - Tumour lysis syndrome [Recovering/Resolving]
  - Hypocalcaemia [Recovering/Resolving]
